FAERS Safety Report 17347847 (Version 1)
Quarter: 2020Q1

REPORT INFORMATION
  Report Type: Report from Study
  Country: US (occurrence: US)
  Receive Date: 20200129
  Receipt Date: 20200129
  Transmission Date: 20200409
  Serious: No
  Sender: FDA-Public Use
  Company Number: US-EXELIXIS-CABO-19025337

PATIENT
  Sex: Male

DRUGS (2)
  1. NEXAVAR [Concomitant]
     Active Substance: SORAFENIB
     Dosage: UNK
  2. CABOMETYX [Suspect]
     Active Substance: CABOZANTINIB S-MALATE
     Indication: HEPATOCELLULAR CARCINOMA
     Dosage: 40 MG, QD
     Route: 048
     Dates: start: 20191026

REACTIONS (4)
  - Diarrhoea [Unknown]
  - Somnolence [Unknown]
  - Rash [Unknown]
  - Cough [Unknown]
